FAERS Safety Report 12290066 (Version 5)
Quarter: 2016Q4

REPORT INFORMATION
  Report Type: Spontaneous
  Country: US (occurrence: US)
  Receive Date: 20160421
  Receipt Date: 20161103
  Transmission Date: 20170207
  Serious: Yes (Hospitalization, Other)
  Sender: FDA-Public Use
  Company Number: US-GLAXOSMITHKLINE-US2016GSK047453

PATIENT
  Age: 55 Year
  Sex: Female

DRUGS (4)
  1. PLAQUENIL [Concomitant]
     Active Substance: HYDROXYCHLOROQUINE SULFATE
  2. PREDNISONE. [Concomitant]
     Active Substance: PREDNISONE
  3. BENLYSTA [Suspect]
     Active Substance: BELIMUMAB
     Indication: SYSTEMIC LUPUS ERYTHEMATOSUS
     Dosage: UNK, VA
     Route: 042
     Dates: start: 201510
  4. TRAMADOL. [Concomitant]
     Active Substance: TRAMADOL

REACTIONS (7)
  - Malaise [Unknown]
  - Pain [Not Recovered/Not Resolved]
  - Abdominal pain upper [Recovering/Resolving]
  - Drug dose omission [Unknown]
  - Arthralgia [Recovering/Resolving]
  - Systemic lupus erythematosus [Unknown]
  - Back pain [Recovering/Resolving]

NARRATIVE: CASE EVENT DATE: 20160826
